FAERS Safety Report 5148190-X (Version None)
Quarter: 2006Q4

REPORT INFORMATION
  Report Type: 
  Country: None (occurrence: None)
  Receive Date: 20061110
  Receipt Date: 20060308
  Transmission Date: 20070319
  Serious: Yes (Hospitalization)
  Sender: FDA-Public Use
  Company Number: US-ELI_LILLY_AND_COMPANY-US200606002604

PATIENT
  Age: 30 Year
  Sex: Female
  Weight: 65.759 kg

DRUGS (6)
  1. ZYPREXA [Suspect]
     Indication: SCHIZOPHRENIA
     Dosage: 5 MG, UNK
     Dates: start: 20040101, end: 20050801
  2. PAXIL [Concomitant]
     Dates: start: 20040101, end: 20041201
  3. EFFEXOR [Concomitant]
     Dates: start: 20040101, end: 20050801
  4. TENORMIN /NEZ/ [Concomitant]
     Dates: start: 20040501
  5. SINEQUAN [Concomitant]
     Dates: start: 20050501
  6. PROZAC [Concomitant]
     Dates: start: 20050801, end: 20050801

REACTIONS (9)
  - BILIARY TRACT DISORDER [None]
  - CONVULSION [None]
  - DIABETES MELLITUS [None]
  - DIABETIC COMA [None]
  - HYPERTENSION [None]
  - METABOLIC DISORDER [None]
  - MYOCARDIAL ISCHAEMIA [None]
  - PANCREATITIS [None]
  - POLYCYSTIC OVARIES [None]
